FAERS Safety Report 18049046 (Version 1)
Quarter: 2020Q3

REPORT INFORMATION
  Report Type: Spontaneous
  Country: IN (occurrence: IN)
  Receive Date: 20200721
  Receipt Date: 20200721
  Transmission Date: 20201103
  Serious: Yes (Hospitalization)
  Sender: FDA-Public Use
  Company Number: IN-EPIC PHARMA LLC-2020EPC00222

PATIENT
  Age: 5 Year
  Sex: Male

DRUGS (1)
  1. PHENYTOIN. [Suspect]
     Active Substance: PHENYTOIN
     Dosage: 20 TABLETS, ONCE
     Route: 048

REACTIONS (1)
  - Dystonia [Recovered/Resolved]
